FAERS Safety Report 15628845 (Version 1)
Quarter: 2018Q4

REPORT INFORMATION
  Report Type: Spontaneous
  Country: US (occurrence: US)
  Receive Date: 20181116
  Receipt Date: 20181116
  Transmission Date: 20190205
  Serious: Yes (Other)
  Sender: FDA-Public Use
  Company Number: US-PFIZER INC-2018458121

PATIENT
  Age: 69 Year
  Sex: Female
  Weight: 68.49 kg

DRUGS (2)
  1. METFORMIN [Concomitant]
     Active Substance: METFORMIN HYDROCHLORIDE
     Indication: DIABETES MELLITUS
     Dosage: 1000 MG, 2X/DAY
  2. TOVIAZ [Suspect]
     Active Substance: FESOTERODINE FUMARATE
     Indication: DYSURIA
     Dosage: 4 MG, 1X/DAY
     Route: 048
     Dates: start: 201806

REACTIONS (3)
  - Intracranial aneurysm [Unknown]
  - Therapeutic response unexpected [Unknown]
  - Lipids increased [Unknown]

NARRATIVE: CASE EVENT DATE: 201809
